FAERS Safety Report 10456425 (Version 1)
Quarter: 2014Q3

REPORT INFORMATION
  Report Type: Report from Study
  Country: US (occurrence: US)
  Receive Date: 20140916
  Receipt Date: 20140916
  Transmission Date: 20150326
  Serious: Yes (Death)
  Sender: FDA-Public Use
  Company Number: US-SA-2014SA124583

PATIENT
  Age: 61 Year
  Sex: Female

DRUGS (5)
  1. TACROLIMUS. [Concomitant]
     Active Substance: TACROLIMUS
     Route: 042
  2. MELPHALAN [Suspect]
     Active Substance: MELPHALAN
     Indication: BONE MARROW CONDITIONING REGIMEN
     Dosage: ON DAY -2
     Route: 041
  3. CLOFARABINE [Suspect]
     Active Substance: CLOFARABINE
     Indication: BONE MARROW CONDITIONING REGIMEN
     Dosage: DAY -7 THROUGH DAY -3
     Route: 041
  4. ALEMTUZUMAB [Suspect]
     Active Substance: ALEMTUZUMAB
     Indication: BONE MARROW CONDITIONING REGIMEN
     Dosage: DAY -7 THROUGH DAY -3 OVER 1 HOUR
     Route: 042
  5. TACROLIMUS. [Concomitant]
     Active Substance: TACROLIMUS
     Route: 048

REACTIONS (2)
  - Cardiac failure chronic [Fatal]
  - Renal failure [Fatal]
